FAERS Safety Report 15749343 (Version 2)
Quarter: 2019Q2

REPORT INFORMATION
  Report Type: Spontaneous
  Country: US (occurrence: US)
  Receive Date: 20181221
  Receipt Date: 20190611
  Transmission Date: 20190711
  Serious: No
  Sender: FDA-Public Use
  Company Number: US-PFIZER INC-2018523091

PATIENT
  Age: 77 Year
  Sex: Male
  Weight: 98.88 kg

DRUGS (1)
  1. GABAPENTIN. [Suspect]
     Active Substance: GABAPENTIN
     Indication: NEUROPATHY PERIPHERAL
     Dosage: UNK
     Dates: start: 2017, end: 201805

REACTIONS (3)
  - Confusional state [Unknown]
  - Off label use [Unknown]
  - Drug ineffective for unapproved indication [Unknown]
